FAERS Safety Report 12655136 (Version 2)
Quarter: 2016Q3

REPORT INFORMATION
  Report Type: Report from Study
  Country: US (occurrence: US)
  Receive Date: 20160816
  Receipt Date: 20160823
  Transmission Date: 20161109
  Serious: Yes (Death, Other)
  Sender: FDA-Public Use
  Company Number: US-GILEAD-2016-0228052

PATIENT
  Age: 20 Year
  Sex: Male

DRUGS (1)
  1. AMBRISENTAN [Suspect]
     Active Substance: AMBRISENTAN
     Indication: PULMONARY HYPERTENSION
     Dosage: 5 MG, QD
     Route: 065
     Dates: start: 20160708

REACTIONS (4)
  - Cardiac arrest [Fatal]
  - Antiphospholipid syndrome [Fatal]
  - Pulmonary hypertension [Fatal]
  - Pulmonary embolism [Fatal]
